FAERS Safety Report 18709430 (Version 10)
Quarter: 2022Q2

REPORT INFORMATION
  Report Type: Report from Study
  Country: US (occurrence: US)
  Receive Date: 20210106
  Receipt Date: 20220413
  Transmission Date: 20220721
  Serious: Yes (Other)
  Sender: FDA-Public Use
  Company Number: US-TAKEDA-2021TUS000486

PATIENT
  Age: 66 Year
  Sex: Male
  Weight: 70 kg

DRUGS (20)
  1. HUMAN IMMUNOGLOBULIN G [Suspect]
     Active Substance: HUMAN IMMUNOGLOBULIN G
     Indication: Idiopathic pulmonary fibrosis
     Dosage: 30 GRAM, Q4WEEKS
     Route: 042
     Dates: start: 20170103
  2. HUMAN IMMUNOGLOBULIN G [Suspect]
     Active Substance: HUMAN IMMUNOGLOBULIN G
     Indication: Hypogammaglobulinaemia
  3. DIPHENHYDRAMINE [Concomitant]
     Active Substance: DIPHENHYDRAMINE
     Route: 065
  4. OFEV [Concomitant]
     Active Substance: NINTEDANIB
     Route: 065
  5. ATENOLOL [Concomitant]
     Active Substance: ATENOLOL
     Dosage: 25 MILLIGRAM, QD
  6. VITAMINS [Concomitant]
     Active Substance: VITAMINS
     Route: 065
  7. SODIUM CHLORIDE [Concomitant]
     Active Substance: SODIUM CHLORIDE
     Route: 065
  8. EPINEPHRINE [Concomitant]
     Active Substance: EPINEPHRINE
     Route: 065
  9. SUDAFED CO [Concomitant]
     Route: 065
  10. METOCLOPRAMIDE [Concomitant]
     Active Substance: METOCLOPRAMIDE
     Route: 065
  11. NEXIUM I.V. [Concomitant]
     Active Substance: ESOMEPRAZOLE SODIUM
     Route: 065
  12. ACETAMINOPHEN [Concomitant]
     Active Substance: ACETAMINOPHEN
     Route: 065
  13. ATORVASTATIN CALCIUM [Concomitant]
     Active Substance: ATORVASTATIN CALCIUM
  14. ALBUTEROL SULFATE [Concomitant]
     Active Substance: ALBUTEROL SULFATE
  15. LIDOCAINE [Concomitant]
     Active Substance: LIDOCAINE
     Route: 065
  16. MUCINEX [Concomitant]
     Active Substance: GUAIFENESIN
     Route: 065
  17. VENTOLIN [Concomitant]
     Active Substance: ALBUTEROL SULFATE
     Route: 065
  18. TRAMADOL [Concomitant]
     Active Substance: TRAMADOL
     Route: 065
  19. MELOXICAM [Concomitant]
     Active Substance: MELOXICAM
     Route: 065
  20. OXYCODONE [Concomitant]
     Active Substance: OXYCODONE
     Route: 065

REACTIONS (9)
  - Rheumatoid arthritis [Unknown]
  - Arthropathy [Unknown]
  - Abdominal discomfort [Unknown]
  - Chest pain [Unknown]
  - Nausea [Recovered/Resolved]
  - Diarrhoea [Unknown]
  - Product dose omission issue [Unknown]
  - Hypertension [Unknown]
  - Off label use [Unknown]

NARRATIVE: CASE EVENT DATE: 20220125
